FAERS Safety Report 9242422 (Version 1)
Quarter: 2013Q2

REPORT INFORMATION
  Report Type: Report from Study
  Country: AT (occurrence: AT)
  Receive Date: 20130419
  Receipt Date: 20130419
  Transmission Date: 20140414
  Serious: Yes (Life-Threatening, Hospitalization)
  Sender: FDA-Public Use
  Company Number: AT-PFIZER INC-2013067555

PATIENT
  Age: 75 Year
  Sex: Female
  Weight: 76.2 kg

DRUGS (5)
  1. IDARUBICIN HCL [Suspect]
     Indication: ACUTE MYELOID LEUKAEMIA
     Dosage: 21 MG ONCE DAILY
     Dates: start: 20130130
  2. CYTARABINE [Suspect]
     Indication: ACUTE MYELOID LEUKAEMIA
     Dosage: 182 MG ONCE DAILY
     Dates: start: 20130130
  3. ETOPOSIDE [Suspect]
     Indication: ACUTE MYELOID LEUKAEMIA
     Dosage: 182 MG ONCE DAILY
     Dates: start: 20130130
  4. ATRA [Suspect]
     Indication: ACUTE MYELOID LEUKAEMIA
     Dosage: 80 MG / 30 MG ONCE DAILY
     Dates: start: 20130204
  5. PEGFILGRASTIM [Concomitant]
     Indication: ACUTE MYELOID LEUKAEMIA
     Dosage: 6 MG, UNK
     Dates: start: 20130208

REACTIONS (2)
  - Sepsis [Recovered/Resolved]
  - Pneumonia fungal [Recovered/Resolved]
